FAERS Safety Report 7665305-X (Version None)
Quarter: 2011Q3

REPORT INFORMATION
  Report Type: 
  Country: None (occurrence: None)
  Receive Date: 20110806
  Receipt Date: 20110519
  Transmission Date: 20111222
  Serious: No
  Sender: FDA-Public Use
  Company Number: US-ABBOTT-11P-163-0727441-00

PATIENT
  Sex: Female

DRUGS (3)
  1. NIASPAN [Suspect]
     Indication: BLOOD CHOLESTEROL INCREASED
     Dates: start: 20110501, end: 20110517
  2. ASPIRIN [Concomitant]
     Indication: PROPHYLAXIS
  3. ASPIRIN [Concomitant]
     Indication: FLUSHING
     Dates: start: 20110501, end: 20110517

REACTIONS (3)
  - FLUSHING [None]
  - PRURITUS [None]
  - MIDDLE INSOMNIA [None]
